FAERS Safety Report 6108307-7 (Version None)
Quarter: 2009Q1

REPORT INFORMATION
  Report Type: 
  Country: None (occurrence: None)
  Receive Date: 20090309
  Receipt Date: 20090226
  Transmission Date: 20090719
  Serious: Yes (Hospitalization)
  Sender: FDA-Public Use
  Company Number: FR-ROCHE-617220

PATIENT
  Sex: Male

DRUGS (4)
  1. MYCOPHENOLATE MOFETIL [Suspect]
     Indication: RENAL TRANSPLANT
     Route: 065
     Dates: start: 20070612, end: 20081225
  2. MYCOPHENOLATE MOFETIL [Suspect]
     Route: 065
     Dates: start: 20081226, end: 20081226
  3. MYCOPHENOLATE MOFETIL [Suspect]
     Route: 065
     Dates: start: 20081227, end: 20081227
  4. BELATACEPT [Suspect]
     Indication: RENAL TRANSPLANT
     Route: 065
     Dates: start: 20080117

REACTIONS (1)
  - POLYOMAVIRUS-ASSOCIATED NEPHROPATHY [None]
